FAERS Safety Report 20290156 (Version 1)
Quarter: 2022Q1

REPORT INFORMATION
  Report Type: Spontaneous
  Country: CN (occurrence: CN)
  Receive Date: 20220104
  Receipt Date: 20220104
  Transmission Date: 20220424
  Serious: Yes (Hospitalization, Other)
  Sender: FDA-Public Use
  Company Number: CN-GLAXOSMITHKLINE-CN2021APC264757

PATIENT
  Age: 25 Year
  Sex: Female
  Weight: 75 kg

DRUGS (2)
  1. LAMOTRIGINE [Suspect]
     Active Substance: LAMOTRIGINE
     Indication: Epilepsy
     Dosage: 37.5 MG, BID
     Route: 048
     Dates: start: 20211215, end: 20211217
  2. LAMOTRIGINE [Suspect]
     Active Substance: LAMOTRIGINE
     Dosage: 50 MG, BID
     Route: 048
     Dates: start: 20211217, end: 20211217

REACTIONS (5)
  - Erythema multiforme [Unknown]
  - Erythema [Unknown]
  - Rash papular [Unknown]
  - Pruritus [Unknown]
  - Target skin lesion [Unknown]

NARRATIVE: CASE EVENT DATE: 20211217
